FAERS Safety Report 13433878 (Version 1)
Quarter: 2017Q2

REPORT INFORMATION
  Report Type: Spontaneous
  Country: FR (occurrence: FR)
  Receive Date: 20170412
  Receipt Date: 20170412
  Transmission Date: 20170830
  Serious: No
  Sender: FDA-Public Use
  Company Number: FR-FRESENIUS KABI-FK201702957

PATIENT
  Age: 20 Year
  Sex: Female

DRUGS (1)
  1. SODIUM CHLORIDE (MANUFACTURER UNKNOWN) [Suspect]
     Active Substance: SODIUM CHLORIDE
     Indication: INTENTIONAL PRODUCT MISUSE

REACTIONS (3)
  - Pain [Unknown]
  - Off label use [Unknown]
  - Injection site inflammation [Unknown]
